FAERS Safety Report 18802285 (Version 4)
Quarter: 2021Q4

REPORT INFORMATION
  Report Type: Report from Study
  Country: None (occurrence: PA)
  Receive Date: 20210128
  Receipt Date: 20211001
  Transmission Date: 20220304
  Serious: Yes (Life-Threatening, Hospitalization)
  Sender: FDA-Public Use
  Company Number: PA-ABBVIE-21K-125-3747307-00

PATIENT
  Age: 56 Year
  Sex: Female
  Weight: 149 kg

DRUGS (2)
  1. HUMIRA [Suspect]
     Active Substance: ADALIMUMAB
     Indication: Psoriasis
     Route: 058
     Dates: start: 20150824, end: 20201226
  2. HUMIRA [Suspect]
     Active Substance: ADALIMUMAB
     Route: 058
     Dates: start: 20210217, end: 20210824

REACTIONS (15)
  - Cardiac disorder [Recovering/Resolving]
  - Illness [Unknown]
  - Cardiac disorder [Unknown]
  - Myocarditis [Recovering/Resolving]
  - Endocarditis [Recovering/Resolving]
  - Mobility decreased [Recovering/Resolving]
  - Gait disturbance [Recovering/Resolving]
  - Blood pressure decreased [Recovering/Resolving]
  - Gait inability [Recovering/Resolving]
  - Blood potassium decreased [Recovering/Resolving]
  - Nervousness [Recovering/Resolving]
  - Dental caries [Recovering/Resolving]
  - Pain [Recovering/Resolving]
  - Blood pressure increased [Recovering/Resolving]
  - Psoriasis [Recovering/Resolving]

NARRATIVE: CASE EVENT DATE: 20210101
